FAERS Safety Report 4976091-6 (Version None)
Quarter: 2006Q2

REPORT INFORMATION
  Report Type: 
  Country: None (occurrence: None)
  Receive Date: 20060411
  Receipt Date: 20060323
  Transmission Date: 20061013
  Serious: Yes (Hospitalization, Other)
  Sender: FDA-Public Use
  Company Number: US200603006084

PATIENT
  Sex: Female

DRUGS (1)
  1. HUMALOG MIX 75/25 [Suspect]

REACTIONS (3)
  - CARDIAC OPERATION [None]
  - DRUG THERAPY CHANGED [None]
  - INTERCEPTED DRUG DISPENSING ERROR [None]
